FAERS Safety Report 8845016 (Version 2)
Quarter: 2013Q1

REPORT INFORMATION
  Report Type: Spontaneous
  Country: FR (occurrence: FR)
  Receive Date: 20121017
  Receipt Date: 20130111
  Transmission Date: 20140127
  Serious: Yes (Hospitalization)
  Sender: FDA-Public Use
  Company Number: FR-PFIZER INC-2012256295

PATIENT
  Age: 88 Year
  Sex: Male

DRUGS (4)
  1. CORDARONE [Suspect]
     Indication: ATRIAL FIBRILLATION
     Dosage: 200 MG, DAILY
     Route: 048
     Dates: start: 2009, end: 20120826
  2. PRADAXA [Suspect]
     Indication: ATRIAL FIBRILLATION
     Dosage: 110 MG, TWICE A DAY
     Route: 048
     Dates: start: 201206, end: 20120824
  3. XATRAL [Concomitant]
     Dosage: UNK
     Dates: start: 2009
  4. AVODART [Concomitant]
     Dosage: UNK
     Dates: start: 20120806

REACTIONS (2)
  - Subdural haematoma [Recovering/Resolving]
  - Electrocardiogram QT prolonged [Recovered/Resolved]
